FAERS Safety Report 4427491-4 (Version None)
Quarter: 2004Q3

REPORT INFORMATION
  Report Type: 
  Country: None (occurrence: None)
  Receive Date: 20040812
  Receipt Date: 20040805
  Transmission Date: 20050211
  Serious: Yes (Other)
  Sender: FDA-Public Use
  Company Number: 2004223983US

PATIENT
  Age: 79 Year
  Sex: Female
  Weight: 60.8 kg

DRUGS (4)
  1. BEXTRA [Suspect]
     Indication: OSTEOARTHRITIS
     Dosage: 10 MG
     Dates: start: 20040623, end: 20040630
  2. DIOVAN [Concomitant]
  3. ATENOLOL [Concomitant]
  4. PROZAC [Concomitant]

REACTIONS (4)
  - ABDOMINAL PAIN [None]
  - FEELING ABNORMAL [None]
  - HEPATOCELLULAR DAMAGE [None]
  - RENAL DISORDER [None]
